FAERS Safety Report 6183460-8 (Version None)
Quarter: 2009Q2

REPORT INFORMATION
  Report Type: 
  Country: None (occurrence: None)
  Receive Date: 20090506
  Receipt Date: 20081216
  Transmission Date: 20091009
  Serious: Yes (Other)
  Sender: FDA-Public Use
  Company Number: 2008AP003489

PATIENT
  Age: 79 Year
  Sex: Male

DRUGS (10)
  1. FLUCONAZOLE [Suspect]
  2. SIMVASTATIN [Suspect]
  3. THIAMINE HCL [Concomitant]
  4. FOLIC ACID [Concomitant]
  5. INSULIN [Concomitant]
  6. LISINOPRIL [Concomitant]
  7. TERAZOSIN HCL [Concomitant]
  8. TOLTERODINE [Concomitant]
  9. GOSERELIN [Concomitant]
  10. MOMETASONE FUROATE [Concomitant]

REACTIONS (7)
  - DRUG INTERACTION [None]
  - DYSPHAGIA [None]
  - HAEMOGLOBIN DECREASED [None]
  - MASTICATION DISORDER [None]
  - RENAL FAILURE ACUTE [None]
  - RHABDOMYOLYSIS [None]
  - SPEECH DISORDER [None]
